FAERS Safety Report 17893148 (Version 2)
Quarter: 2020Q2

REPORT INFORMATION
  Report Type: Spontaneous
  Country: US (occurrence: US)
  Receive Date: 20200614
  Receipt Date: 20200624
  Transmission Date: 20200714
  Serious: No
  Sender: FDA-Public Use
  Company Number: US-GLAXOSMITHKLINE-US2020AMR098736

PATIENT
  Sex: Female

DRUGS (1)
  1. ZEJULA [Suspect]
     Active Substance: NIRAPARIB
     Indication: OVARIAN CANCER
     Dosage: 100 MG, QD
     Dates: start: 20190129

REACTIONS (6)
  - Carbohydrate antigen 125 increased [Recovering/Resolving]
  - Underdose [Unknown]
  - Blood cholesterol increased [Unknown]
  - Nausea [Unknown]
  - Platelet count decreased [Unknown]
  - Blood triglycerides increased [Unknown]
